FAERS Safety Report 9682527 (Version 1)
Quarter: 2013Q4

REPORT INFORMATION
  Report Type: Spontaneous
  Country: US (occurrence: US)
  Receive Date: 20131112
  Receipt Date: 20131112
  Transmission Date: 20140711
  Serious: No
  Sender: FDA-Public Use
  Company Number: US-B.I. PHARMACEUTICALS,INC./RIDGEFIELD-2013-BI-35221BP

PATIENT
  Age: 52 Year
  Sex: Female
  Weight: 64 kg

DRUGS (4)
  1. ATROVENT INHALATION SOLUTION [Suspect]
     Indication: ASTHMA
     Route: 055
     Dates: start: 20131015, end: 20131018
  2. GAMMAGARD [Concomitant]
     Indication: IMMUNE SYSTEM DISORDER
     Dosage: FORMULATION: SUBCUTANEOUS
     Route: 058
     Dates: start: 2008
  3. MAXIDE [Concomitant]
     Indication: FLUID RETENTION
     Dates: start: 2008
  4. KLOR-CON [Concomitant]
     Indication: SUPPLEMENTATION THERAPY

REACTIONS (2)
  - Asthma [Recovered/Resolved]
  - Off label use [Recovered/Resolved]
